FAERS Safety Report 8690788 (Version 2)
Quarter: 2012Q4

REPORT INFORMATION
  Report Type: 
  Country: US (occurrence: US)
  Receive Date: 20120728
  Receipt Date: 20121004
  Transmission Date: 20130627
  Serious: No
  Sender: FDA-Public Use
  Company Number: US-009507513-2012SP032552

PATIENT

DRUGS (3)
  1. PROVENTIL [Suspect]
     Indication: ASTHMA
     Dosage: 2 DF, q4h
     Route: 055
     Dates: start: 2008
  2. ADVAIR [Concomitant]
  3. ASPIRIN [Concomitant]

REACTIONS (2)
  - Wheezing [Recovering/Resolving]
  - Chest discomfort [Recovering/Resolving]
